FAERS Safety Report 18241555 (Version 1)
Quarter: 2020Q3

REPORT INFORMATION
  Report Type: Spontaneous
  Country: US (occurrence: US)
  Receive Date: 20200908
  Receipt Date: 20200908
  Transmission Date: 20201103
  Serious: No
  Sender: FDA-Public Use
  Company Number: US-GLENMARK PHARMACEUTICALS-2020GMK048606

PATIENT

DRUGS (1)
  1. MUPIROCIN OINTMENT USP, 2% [Suspect]
     Active Substance: MUPIROCIN
     Indication: ERYTHEMA MULTIFORME
     Dosage: UNK, BID
     Route: 061
     Dates: start: 20200706

REACTIONS (3)
  - No adverse event [Unknown]
  - Wrong technique in product usage process [Unknown]
  - Intentional product misuse [Unknown]

NARRATIVE: CASE EVENT DATE: 20200706
